FAERS Safety Report 5500745-6 (Version None)
Quarter: 2007Q4

REPORT INFORMATION
  Report Type: 
  Country: None (occurrence: None)
  Receive Date: 20071029
  Receipt Date: 20071023
  Transmission Date: 20080405
  Serious: Yes (Disabling)
  Sender: FDA-Public Use
  Company Number: US-BAXTER-2007BH008517

PATIENT
  Age: 30 Year
  Sex: Male

DRUGS (2)
  1. BREVIBLOC [Suspect]
     Indication: DRUG USE FOR UNKNOWN INDICATION
     Dosage: DOSE UNIT:UNKNOWN
     Route: 065
     Dates: start: 20040401, end: 20040401
  2. SEVOFLURANE [Suspect]
     Indication: DRUG USE FOR UNKNOWN INDICATION
     Dosage: DOSE UNIT:UNKNOWN
     Route: 065
     Dates: start: 20040401

REACTIONS (4)
  - BRADYCARDIA [None]
  - HYPOXIC ENCEPHALOPATHY [None]
  - MENTAL IMPAIRMENT [None]
  - SHOCK [None]
